FAERS Safety Report 7678586-3 (Version None)
Quarter: 2011Q3

REPORT INFORMATION
  Report Type: 
  Country: None (occurrence: None)
  Receive Date: 20110811
  Receipt Date: 20110803
  Transmission Date: 20111222
  Serious: Yes (Hospitalization)
  Sender: FDA-Public Use
  Company Number: PHHY2011JP69885

PATIENT
  Age: 66 Year
  Sex: Female
  Weight: 64 kg

DRUGS (1)
  1. AMPICILLIN SODIUM/SULBACTAM SODIUM [Suspect]
     Indication: INFECTION PROPHYLAXIS
     Dosage: 3 G, UNK
     Route: 042
     Dates: start: 20110507, end: 20110507

REACTIONS (5)
  - ERYTHEMA [None]
  - OCULAR HYPERAEMIA [None]
  - FEELING HOT [None]
  - DRUG ERUPTION [None]
  - STEVENS-JOHNSON SYNDROME [None]
